FAERS Safety Report 19468656 (Version 1)
Quarter: 2021Q2

REPORT INFORMATION
  Report Type: Spontaneous
  Country: US (occurrence: US)
  Receive Date: 20210628
  Receipt Date: 20210628
  Transmission Date: 20210717
  Serious: Yes (Other)
  Sender: FDA-Public Use
  Company Number: NVSC2021US138104

PATIENT
  Age: 66 Year
  Sex: Male

DRUGS (9)
  1. IPILIMUMAB [Suspect]
     Active Substance: IPILIMUMAB
     Indication: PROSTATE CANCER METASTATIC
     Dosage: 4 CYCLES
     Route: 065
     Dates: start: 2015
  2. CARBOPLATIN. [Suspect]
     Active Substance: CARBOPLATIN
     Dosage: 3 CYCLES
     Route: 065
     Dates: start: 2021
  3. CARBOPLATIN. [Suspect]
     Active Substance: CARBOPLATIN
     Indication: PROSTATE CANCER METASTATIC
     Dosage: 3 CYCLES
     Route: 065
     Dates: start: 2014, end: 2015
  4. CABAZITAXEL [Suspect]
     Active Substance: CABAZITAXEL
     Indication: PROSTATE CANCER METASTATIC
     Dosage: 3 CYCLES
     Route: 065
     Dates: start: 2014, end: 2015
  5. CABAZITAXEL [Suspect]
     Active Substance: CABAZITAXEL
     Dosage: 3 CYCLES
     Route: 065
     Dates: start: 2021
  6. ABIRATERONE. [Suspect]
     Active Substance: ABIRATERONE ACETATE
     Indication: CHEMOTHERAPY
     Dosage: UNK
     Route: 065
     Dates: start: 2017
  7. LEUPROLIDE [Suspect]
     Active Substance: LEUPROLIDE
     Indication: PROSTATE CANCER METASTATIC
  8. ABIRATERONE. [Suspect]
     Active Substance: ABIRATERONE ACETATE
     Indication: PROSTATE CANCER METASTATIC
  9. LEUPROLIDE [Suspect]
     Active Substance: LEUPROLIDE
     Indication: CHEMOTHERAPY
     Dosage: UNK
     Route: 065

REACTIONS (11)
  - Pain [Recovering/Resolving]
  - Fatigue [Unknown]
  - Metastases to lymph nodes [Unknown]
  - Pelvic pain [Unknown]
  - Neuropathy peripheral [Unknown]
  - Metastases to spine [Unknown]
  - Neuroendocrine carcinoma [Unknown]
  - Prostate cancer recurrent [Unknown]
  - Mobility decreased [Unknown]
  - Gait disturbance [Unknown]
  - Bone lesion [Unknown]
